FAERS Safety Report 9465512 (Version 3)
Quarter: 2013Q3

REPORT INFORMATION
  Report Type: Report from Study
  Country: DE (occurrence: DE)
  Receive Date: 20130820
  Receipt Date: 20130823
  Transmission Date: 20140515
  Serious: Yes (Hospitalization)
  Sender: FDA-Public Use
  Company Number: DE-BRISTOL-MYERS SQUIBB COMPANY-19163971

PATIENT
  Age: 43 Year
  Sex: Female

DRUGS (6)
  1. CARBOPLATIN [Suspect]
     Indication: OVARIAN CANCER
     Dosage: LAST DOSE: 11JUL2013
     Route: 042
     Dates: start: 20130620, end: 20130801
  2. PACLITAXEL [Suspect]
     Indication: OVARIAN CANCER
     Dosage: LAST DOSE: 11JUL2013
     Route: 042
     Dates: start: 20130620, end: 20130801
  3. BEVACIZUMAB [Suspect]
     Indication: OVARIAN CANCER
     Dosage: LAST DOSE: 11JUL2013
     Route: 042
     Dates: start: 20130620, end: 20130801
  4. EUTHYROX [Concomitant]
     Indication: THYROID CANCER
     Dosage: 1137MG
     Route: 048
     Dates: end: 20130718
  5. CHOLESTYRAMINE RESIN [Concomitant]
     Indication: SHORT-BOWEL SYNDROME
     Route: 048
     Dates: start: 20130607, end: 20130718
  6. OCTREOTIDE [Concomitant]
     Indication: SHORT-BOWEL SYNDROME
     Route: 048
     Dates: start: 20130607, end: 20130718

REACTIONS (4)
  - Abdominal wall abscess [Recovering/Resolving]
  - Enterocutaneous fistula [Recovered/Resolved]
  - Hypertension [Unknown]
  - Wound infection [Not Recovered/Not Resolved]
